FAERS Safety Report 11549260 (Version 3)
Quarter: 2022Q4

REPORT INFORMATION
  Report Type: Spontaneous
  Country: US (occurrence: US)
  Receive Date: 20150924
  Receipt Date: 20221223
  Transmission Date: 20230112
  Serious: Yes (Other)
  Sender: FDA-Public Use
  Company Number: US-INCYTE CORPORATION-2015IN002988

PATIENT

DRUGS (3)
  1. JAKAFI [Suspect]
     Active Substance: RUXOLITINIB
     Indication: Polycythaemia vera
     Dosage: 10 MG, BID
     Route: 048
     Dates: start: 20150407
  2. JAKAFI [Suspect]
     Active Substance: RUXOLITINIB
     Dosage: 20 MILLIGRAM, BID
     Route: 048
     Dates: start: 20150410
  3. JAKAFI [Suspect]
     Active Substance: RUXOLITINIB
     Dosage: 20 MILLIGRAM, BID
     Route: 048
     Dates: start: 20150410

REACTIONS (16)
  - Rectal haemorrhage [Unknown]
  - Loss of consciousness [Unknown]
  - Pyrexia [Unknown]
  - Pain [Unknown]
  - Myalgia [Unknown]
  - Cardiovascular disorder [Unknown]
  - Haematocrit increased [Unknown]
  - Memory impairment [Unknown]
  - Feeling abnormal [Unknown]
  - COVID-19 [Unknown]
  - Constipation [Unknown]
  - Haematocrit decreased [Unknown]
  - Pruritus [Unknown]
  - Dizziness [Unknown]
  - Nausea [Unknown]
  - Balance disorder [Unknown]

NARRATIVE: CASE EVENT DATE: 20150623
